FAERS Safety Report 20790475 (Version 2)
Quarter: 2024Q2

REPORT INFORMATION
  Report Type: Spontaneous
  Country: GB (occurrence: GB)
  Receive Date: 20220505
  Receipt Date: 20240522
  Transmission Date: 20240715
  Serious: Yes (Other)
  Sender: FDA-Public Use
  Company Number: GB-TEVA-2022-GB-2033087

PATIENT
  Age: 16 Year
  Sex: Male

DRUGS (9)
  1. DEXAMETHASONE [Suspect]
     Active Substance: DEXAMETHASONE
     Indication: Acute lymphocytic leukaemia
     Route: 065
  2. DEXAMETHASONE [Suspect]
     Active Substance: DEXAMETHASONE
     Indication: Acute lymphocytic leukaemia
     Dosage: DOSAGE TEXT: FOR COVID-19 PNEUMONITIS DURING FIRST TWO ADMISSIONS
     Route: 042
  3. TISAGENLECLEUCEL [Suspect]
     Active Substance: TISAGENLECLEUCEL
     Indication: Acute lymphocytic leukaemia
     Dosage: DOSAGE TEXT: CHIMERIC ANTIGEN RECEPTOR T-CELL THERAPY
     Route: 065
  4. VINCRISTINE [Suspect]
     Active Substance: VINCRISTINE
     Indication: Acute lymphocytic leukaemia
     Route: 065
  5. NITAZOXANIDE [Suspect]
     Active Substance: NITAZOXANIDE
     Indication: COVID-19 pneumonia
     Dosage: DOSAGE TEXT: DURING SECOND ADMISSION
     Route: 065
  6. Immunoglobulin [Concomitant]
     Indication: Product used for unknown indication
     Route: 041
  7. REMDESIVIR [Concomitant]
     Active Substance: REMDESIVIR
     Indication: COVID-19 pneumonia
     Dosage: DOSAGE TEXT: RECEIVED DURING ALL THREE ADMISSION
     Route: 042
  8. METFORMIN [Concomitant]
     Active Substance: METFORMIN HYDROCHLORIDE
     Indication: Type 2 diabetes mellitus
     Route: 065
  9. TOCILIZUMAB [Concomitant]
     Active Substance: TOCILIZUMAB
     Indication: Inflammation
     Dosage: TIME INTERVAL: TOTAL: DOSAGE TEXT: DURING SECOND ADMISSION
     Route: 065

REACTIONS (5)
  - Type 2 diabetes mellitus [Recovering/Resolving]
  - Neuromyopathy [Recovering/Resolving]
  - Neutropenia [Unknown]
  - Thrombocytopenia [Unknown]
  - Off label use [Unknown]
